FAERS Safety Report 7302920-7 (Version None)
Quarter: 2011Q1

REPORT INFORMATION
  Report Type: 
  Country: None (occurrence: None)
  Receive Date: 20110218
  Receipt Date: 20110204
  Transmission Date: 20110831
  Serious: Yes (Hospitalization)
  Sender: FDA-Public Use
  Company Number: DK-BIOGENIDEC-2011BI000592

PATIENT
  Age: 28 Year
  Sex: Female

DRUGS (6)
  1. TYSABRI [Suspect]
     Indication: RELAPSING-REMITTING MULTIPLE SCLEROSIS
     Route: 042
     Dates: start: 20070607, end: 20101230
  2. CIPRAMIL [Concomitant]
     Route: 048
  3. ACETAMINOPHEN [Concomitant]
  4. OMEPRAZOLE [Concomitant]
     Route: 048
  5. LAMICTAL [Concomitant]
     Route: 048
  6. BAKLOFEN [Concomitant]
     Route: 048

REACTIONS (5)
  - HEPATITIS TOXIC [None]
  - ROAD TRAFFIC ACCIDENT [None]
  - BORDERLINE PERSONALITY DISORDER [None]
  - CONCUSSION [None]
  - MENTAL DISORDER [None]
